FAERS Safety Report 26157503 (Version 1)
Quarter: 2025Q4

REPORT INFORMATION
  Report Type: Spontaneous
  Country: US (occurrence: None)
  Receive Date: 20251212
  Receipt Date: 20251212
  Transmission Date: 20260118
  Serious: Yes (Other)
  Sender: FDA-CTU
  Company Number: None

PATIENT
  Sex: Female

DRUGS (3)
  1. SKYRIZI [Suspect]
     Active Substance: RISANKIZUMAB-RZAA
     Dosage: FREQUENCY : AS DIRECTED;?FREQ: ADMINISTER 180 MG SUBCUTANEOUSLY WITH OBI ON THIGH QR ABDOMEN, WEEK 12 AND EVERY 8 WEEKS
     Route: 058
     Dates: start: 20251022
  2. IRON [Concomitant]
     Active Substance: IRON
  3. MULTIVITAMIN WOMENS [Concomitant]

REACTIONS (1)
  - Adverse event [None]
